FAERS Safety Report 25093251 (Version 1)
Quarter: 2025Q1

REPORT INFORMATION
  Report Type: Spontaneous
  Country: AU (occurrence: AU)
  Receive Date: 20250319
  Receipt Date: 20250319
  Transmission Date: 20250408
  Serious: Yes (Other)
  Sender: AMGEN
  Company Number: AU-AMGEN-AUSSP2025051223

PATIENT

DRUGS (4)
  1. MVASI [Suspect]
     Active Substance: BEVACIZUMAB-AWWB
     Indication: Diabetic retinopathy
  2. MVASI [Suspect]
     Active Substance: BEVACIZUMAB-AWWB
     Indication: Vitreous haemorrhage
  3. CEFTAZIDIME [Concomitant]
     Active Substance: CEFTAZIDIME
  4. VANCOMYCIN [Concomitant]
     Active Substance: VANCOMYCIN

REACTIONS (3)
  - Bacterial endophthalmitis [Unknown]
  - Staphylococcal infection [Unknown]
  - Off label use [Unknown]
